FAERS Safety Report 11520560 (Version 1)
Quarter: 2015Q3

REPORT INFORMATION
  Report Type: Report from Study
  Country: DE (occurrence: DE)
  Receive Date: 20150918
  Receipt Date: 20150918
  Transmission Date: 20151125
  Serious: Yes (Other)
  Sender: FDA-Public Use
  Company Number: DE-CELGENE-062-21880-14011450

PATIENT
  Age: 72 Year
  Sex: Female
  Weight: 68.1 kg

DRUGS (9)
  1. AQUAPHOR [Concomitant]
     Active Substance: PETROLATUM
     Indication: PRODUCT USED FOR UNKNOWN INDICATION
     Dosage: 1/2 A DAY
     Route: 065
  2. SIMVASTATIN. [Concomitant]
     Active Substance: SIMVASTATIN
     Indication: PRODUCT USED FOR UNKNOWN INDICATION
     Route: 065
  3. REVLIMID [Suspect]
     Active Substance: LENALIDOMIDE
     Indication: MYELODYSPLASTIC SYNDROME
     Route: 048
     Dates: start: 20070613, end: 20080704
  4. REVLIMID [Suspect]
     Active Substance: LENALIDOMIDE
     Route: 048
     Dates: start: 200809
  5. REVLIMID [Suspect]
     Active Substance: LENALIDOMIDE
     Route: 048
     Dates: start: 201006
  6. EUTHYROX [Concomitant]
     Active Substance: LEVOTHYROXINE SODIUM
     Indication: PRODUCT USED FOR UNKNOWN INDICATION
     Route: 065
  7. L-THYROXIN [Concomitant]
     Active Substance: LEVOTHYROXINE SODIUM
     Indication: PRODUCT USED FOR UNKNOWN INDICATION
     Dosage: 10 MILLIGRAM
     Route: 065
  8. RAMIPRIL. [Concomitant]
     Active Substance: RAMIPRIL
     Indication: PRODUCT USED FOR UNKNOWN INDICATION
     Dosage: 1/2 A DAY
     Route: 065
  9. BISOPROLOL [Concomitant]
     Active Substance: BISOPROLOL
     Indication: PRODUCT USED FOR UNKNOWN INDICATION
     Route: 065

REACTIONS (7)
  - Atrioventricular block second degree [Unknown]
  - Diarrhoea [Unknown]
  - Atrial fibrillation [Unknown]
  - Uterine prolapse [Unknown]
  - Femoral neck fracture [Unknown]
  - Lumbar spinal stenosis [Unknown]
  - Sinus node dysfunction [Unknown]

NARRATIVE: CASE EVENT DATE: 200807
